FAERS Safety Report 20415812 (Version 1)
Quarter: 2022Q1

REPORT INFORMATION
  Report Type: Spontaneous
  Country: US (occurrence: None)
  Receive Date: 20220201
  Receipt Date: 20220201
  Transmission Date: 20220423
  Serious: No
  Sender: FDA-Public Use
  Company Number: None

PATIENT
  Age: 21 Year
  Sex: Male

DRUGS (1)
  1. HUMIRA [Suspect]
     Active Substance: ADALIMUMAB
     Indication: Ankylosing spondylitis
     Dosage: 40MG EVERY 14 DAYS SUBCUTANEOUS?
     Route: 058
     Dates: start: 20210903

REACTIONS (4)
  - Injection site pain [None]
  - Injection site bruising [None]
  - Injection site haemorrhage [None]
  - Needle issue [None]

NARRATIVE: CASE EVENT DATE: 20220115
